FAERS Safety Report 5211763-X (Version None)
Quarter: 2007Q1

REPORT INFORMATION
  Report Type: 
  Country: None (occurrence: None)
  Receive Date: 20070118
  Receipt Date: 20070110
  Transmission Date: 20070707
  Serious: Yes (Hospitalization)
  Sender: FDA-Public Use
  Company Number: JP-JNJFOC-20061202933

PATIENT
  Sex: Female
  Weight: 54 kg

DRUGS (14)
  1. REMICADE [Suspect]
     Route: 042
  2. REMICADE [Suspect]
     Dosage: 18 INFUSIONS ONUNKNOWN DATES
     Route: 042
  3. REMICADE [Suspect]
     Indication: RHEUMATOID ARTHRITIS
     Route: 042
  4. RHEUMATREX [Suspect]
     Indication: RHEUMATOID ARTHRITIS
     Dosage: 8MG/W
     Route: 048
  5. PREDONINE [Suspect]
     Route: 048
  6. PREDONINE [Suspect]
     Route: 048
  7. PREDONINE [Suspect]
     Indication: RHEUMATOID ARTHRITIS
     Route: 048
  8. LOXONIN [Concomitant]
     Indication: RHEUMATOID ARTHRITIS
     Route: 048
  9. CLARITHROMYCIN [Concomitant]
     Indication: BRONCHIECTASIS
     Route: 048
  10. FOSAMAC [Concomitant]
     Indication: OSTEOPOROSIS
     Route: 048
  11. SELBEX [Concomitant]
     Indication: GASTRITIS
     Route: 048
  12. JUVELA N [Concomitant]
     Indication: RHEUMATOID ARTHRITIS
     Route: 048
  13. VITAMEDIN [Concomitant]
     Indication: RHEUMATOID ARTHRITIS
     Route: 048
  14. FOLIAMIN [Concomitant]
     Indication: RHEUMATOID ARTHRITIS
     Dosage: 5MG/W
     Route: 048

REACTIONS (1)
  - CYTOMEGALOVIRUS ENTEROCOLITIS [None]
